FAERS Safety Report 11997466 (Version 1)
Quarter: 2016Q1

REPORT INFORMATION
  Report Type: Spontaneous
  Country: TW (occurrence: TW)
  Receive Date: 20160203
  Receipt Date: 20160203
  Transmission Date: 20160526
  Serious: Yes (Death)
  Sender: FDA-Public Use
  Company Number: TW-AMGEN-TWNSP2016011835

PATIENT
  Age: 53 Year
  Sex: Male

DRUGS (11)
  1. COSPANON [Concomitant]
     Active Substance: FLOPROPIONE
     Dosage: 40 MG, AS NEEDED
  2. ENBREL [Suspect]
     Active Substance: ETANERCEPT
     Indication: ANKYLOSING SPONDYLITIS
     Dosage: 50 MG, EVERY 2 WEEKS
     Route: 058
     Dates: start: 20150630, end: 20151016
  3. MESYREL [Concomitant]
     Dosage: 50 MG, 1X/DAY (HS)
  4. KASCOAL [Concomitant]
     Dosage: 40 MG, 3X/DAY
  5. RANITIDINE [Concomitant]
     Active Substance: RANITIDINE\RANITIDINE HYDROCHLORIDE
     Dosage: 150 MG, 1X/DAY
  6. LACIDIPINE [Concomitant]
     Active Substance: LACIDIPINE
     Dosage: 4 MG, 1X/DAY
  7. STILNOX [Concomitant]
     Active Substance: ZOLPIDEM TARTRATE
     Dosage: 10 MG, 1X/DAY (HS)
  8. ALGITAB [Concomitant]
     Dosage: 200 MG, 3X/DAY
  9. BISOPROLOL [Concomitant]
     Active Substance: BISOPROLOL
     Dosage: 5 MG, 1X/DAY
  10. MAGNESIUM OXIDE. [Concomitant]
     Active Substance: MAGNESIUM OXIDE
     Dosage: 250 MG, 3X/DAY
  11. EURODIN                            /00401202/ [Concomitant]
     Active Substance: DIHYDROERGOCRISTINE MESYLATE
     Dosage: 2 MG, 1X/DAY (HS)

REACTIONS (1)
  - Myocardial infarction [Fatal]
